FAERS Safety Report 4286692-9 (Version None)
Quarter: 2004Q1

REPORT INFORMATION
  Report Type: 
  Country: None (occurrence: None)
  Receive Date: 20040206
  Receipt Date: 20040113
  Transmission Date: 20041129
  Serious: Yes (Hospitalization)
  Sender: FDA-Public Use
  Company Number: US-BRISTOL-MYERS SQUIBB COMPANY-12476313

PATIENT
  Age: 78 Year
  Sex: Male
  Weight: 100 kg

DRUGS (18)
  1. CARBOPLATIN [Suspect]
     Indication: NON-SMALL CELL LUNG CANCER
     Route: 042
     Dates: start: 20031204, end: 20031204
  2. GEMCITABINE HCL [Suspect]
     Indication: NON-SMALL CELL LUNG CANCER
     Route: 042
     Dates: start: 20031211, end: 20031211
  3. THEOPHYLLINE [Concomitant]
  4. PREDNISONE [Concomitant]
  5. MICRO-K [Concomitant]
  6. TRENTAL [Concomitant]
  7. LASIX [Concomitant]
  8. PROSCAR [Concomitant]
  9. ADVAIR DISKUS 100/50 [Concomitant]
  10. XANAX [Concomitant]
  11. COMBIVENT [Concomitant]
  12. DECADRON [Concomitant]
  13. KYTRIL [Concomitant]
  14. RHINOCAPS [Concomitant]
     Dosage: RHINOCAPS: DECONGESTANT WITH ANALGESIC
  15. OXYGEN [Concomitant]
  16. RITALIN [Concomitant]
  17. ALBUTEROL [Concomitant]
  18. ATROVENT [Concomitant]

REACTIONS (16)
  - ANAEMIA [None]
  - ANOREXIA [None]
  - ASTHENIA [None]
  - ATRIAL FIBRILLATION [None]
  - ATRIAL TACHYCARDIA [None]
  - BLOOD PRESSURE SYSTOLIC INCREASED [None]
  - CATHETER RELATED INFECTION [None]
  - CELLULITIS [None]
  - DYSPNOEA [None]
  - ESSENTIAL TREMOR [None]
  - FATIGUE [None]
  - GASTROINTESTINAL HAEMORRHAGE [None]
  - LUNG DISORDER [None]
  - MARKEDLY REDUCED DIETARY INTAKE [None]
  - PLATELET COUNT DECREASED [None]
  - STAPHYLOCOCCAL INFECTION [None]
